FAERS Safety Report 6635594-9 (Version None)
Quarter: 2010Q1

REPORT INFORMATION
  Report Type: 
  Country: None (occurrence: None)
  Receive Date: 20100315
  Receipt Date: 20100310
  Transmission Date: 20100710
  Serious: Yes (Other)
  Sender: FDA-Public Use
  Company Number: CA-MERCK-0802CAN00059

PATIENT
  Sex: Male

DRUGS (4)
  1. ZETIA [Suspect]
     Route: 048
  2. ZETIA [Suspect]
     Route: 048
  3. ATORVASTATIN CALCIUM [Concomitant]
     Route: 065
  4. ROSUVASTATIN CALCIUM [Concomitant]
     Route: 065

REACTIONS (2)
  - INAPPROPRIATE SCHEDULE OF DRUG ADMINISTRATION [None]
  - MEMORY IMPAIRMENT [None]
